FAERS Safety Report 23079768 (Version 2)
Quarter: 2023Q4

REPORT INFORMATION
  Report Type: Spontaneous
  Country: US (occurrence: US)
  Receive Date: 20231018
  Receipt Date: 20231218
  Transmission Date: 20240110
  Serious: Yes (Other)
  Sender: FDA-Public Use
  Company Number: US-PFIZER INC-202300329733

PATIENT
  Age: 71 Year
  Sex: Female
  Weight: 54.422 kg

DRUGS (8)
  1. PAXLOVID [Suspect]
     Active Substance: NIRMATRELVIR\RITONAVIR
     Indication: COVID-19 treatment
     Dosage: [NIRMATRELVIR 150 MG]/[RITONAVIR 100 MG]; 2X/DAY
     Dates: start: 20220512, end: 20220514
  2. GABAPENTIN [Concomitant]
     Active Substance: GABAPENTIN
     Dosage: 100 MG
     Dates: start: 2019
  3. GABAPENTIN [Concomitant]
     Active Substance: GABAPENTIN
     Dosage: 100 MG
     Dates: start: 202109, end: 20231001
  4. ATORVASTATIN/LOSARTAN [Concomitant]
     Dosage: 10 MG
     Dates: start: 2000
  5. ATORVASTATIN/LOSARTAN [Concomitant]
     Dosage: 10 MG
     Dates: start: 20190213
  6. LATANOPROST + TIMOLOL [Concomitant]
     Dosage: UNK
  7. ALPRAZOLAM [Concomitant]
     Active Substance: ALPRAZOLAM
     Dosage: 0.5 MG
     Dates: start: 20210905
  8. NAPROXEN [Concomitant]
     Active Substance: NAPROXEN
     Dosage: 500 MG, AS NEEDED
     Dates: start: 202109, end: 202211

REACTIONS (8)
  - Colitis microscopic [Unknown]
  - Haematochezia [Unknown]
  - Enzyme level decreased [Not Recovered/Not Resolved]
  - Muscle spasms [Not Recovered/Not Resolved]
  - Gait inability [Unknown]
  - Dysstasia [Unknown]
  - Gastrointestinal disorder [Not Recovered/Not Resolved]
  - Endocrine pancreatic disorder [Not Recovered/Not Resolved]

NARRATIVE: CASE EVENT DATE: 20220501
